FAERS Safety Report 7457922-7 (Version None)
Quarter: 2011Q2

REPORT INFORMATION
  Report Type: 
  Country: None (occurrence: None)
  Receive Date: 20110504
  Receipt Date: 20110429
  Transmission Date: 20111010
  Serious: Yes (Other)
  Sender: FDA-Public Use
  Company Number: BR-PFIZER INC-2011093511

PATIENT
  Age: 38 Year
  Sex: Female
  Weight: 55 kg

DRUGS (1)
  1. VIBRAMICINA [Suspect]
     Indication: BLOOD UREA
     Dosage: 100 MG, 3X/DAY
     Route: 048
     Dates: start: 20110315, end: 20110325

REACTIONS (6)
  - GASTRITIS [None]
  - VULVOVAGINAL DRYNESS [None]
  - INFLAMMATION [None]
  - BURNING SENSATION MUCOSAL [None]
  - WEIGHT DECREASED [None]
  - TOXICITY TO VARIOUS AGENTS [None]
